FAERS Safety Report 25608898 (Version 2)
Quarter: 2025Q3

REPORT INFORMATION
  Report Type: Spontaneous
  Country: CA (occurrence: CA)
  Receive Date: 20250726
  Receipt Date: 20250926
  Transmission Date: 20251021
  Serious: Yes (Other)
  Sender: CELLTRION
  Company Number: CA-PFIZER INC-202500083007

PATIENT

DRUGS (14)
  1. INFLECTRA [Suspect]
     Active Substance: INFLIXIMAB-DYYB
     Indication: Colitis ulcerative
     Dates: start: 20210505
  2. INFLECTRA [Suspect]
     Active Substance: INFLIXIMAB-DYYB
     Dates: start: 20250220
  3. INFLECTRA [Suspect]
     Active Substance: INFLIXIMAB-DYYB
     Dates: start: 20250415
  4. INFLECTRA [Suspect]
     Active Substance: INFLIXIMAB-DYYB
     Dates: start: 20250718
  5. INFLECTRA [Suspect]
     Active Substance: INFLIXIMAB-DYYB
     Dates: start: 20250718
  6. ATORVASTATIN [Concomitant]
     Active Substance: ATORVASTATIN
  7. EZETIMIBE [Concomitant]
     Active Substance: EZETIMIBE
  8. OMEPRAZOLE [Concomitant]
     Active Substance: OMEPRAZOLE
  9. RIVAROXABAN [Concomitant]
     Active Substance: RIVAROXABAN
  10. IRBESARTAN [Concomitant]
     Active Substance: IRBESARTAN
  11. METOPROLOL [Concomitant]
     Active Substance: METOPROLOL
  12. INDAPAMIDE [Concomitant]
     Active Substance: INDAPAMIDE
  13. ELLIPTA [Concomitant]
  14. NITROGLYCERIN [Concomitant]
     Active Substance: NITROGLYCERIN

REACTIONS (2)
  - Knee operation [Unknown]
  - Arthralgia [Recovered/Resolved]
